FAERS Safety Report 25182478 (Version 2)
Quarter: 2025Q2

REPORT INFORMATION
  Report Type: Spontaneous
  Country: US (occurrence: US)
  Receive Date: 20250410
  Receipt Date: 20250519
  Transmission Date: 20250716
  Serious: No
  Sender: KINIKSA PHARMACEUTICALS
  Company Number: US-Kiniksa Pharmaceuticals Ltd.-2025KPU000492

PATIENT

DRUGS (3)
  1. ARCALYST [Suspect]
     Active Substance: RILONACEPT
     Indication: Pericarditis
     Route: 058
  2. ARCALYST [Suspect]
     Active Substance: RILONACEPT
     Dosage: 160 MILLIGRAM, QW
     Route: 058
     Dates: end: 202501
  3. COLCHICINE [Suspect]
     Active Substance: COLCHICINE
     Indication: Pericarditis

REACTIONS (4)
  - Urticaria [Not Recovered/Not Resolved]
  - Pericarditis constrictive [Unknown]
  - Drug hypersensitivity [Unknown]
  - Pruritus [Unknown]

NARRATIVE: CASE EVENT DATE: 20250101
